FAERS Safety Report 8575149-2 (Version None)
Quarter: 2012Q3

REPORT INFORMATION
  Report Type: 
  Country: None (occurrence: None)
  Receive Date: 20120807
  Receipt Date: 20120727
  Transmission Date: 20120928
  Serious: Yes (Hospitalization, Other)
  Sender: FDA-Public Use
  Company Number: FR-PFIZER INC-2012189377

PATIENT
  Age: 81 Year
  Sex: Male

DRUGS (6)
  1. LYRICA [Concomitant]
     Dosage: UNK
  2. ARANESP [Concomitant]
     Dosage: UNK
  3. ACETAMINOPHEN [Concomitant]
     Dosage: UNK
  4. CORDARONE [Suspect]
     Indication: ATRIAL FIBRILLATION
     Dosage: 1000 MG, WEEKLY (5 DAYS PER WEEK)
     Route: 048
     Dates: end: 20120525
  5. ZOLTUM [Concomitant]
     Dosage: UNK
  6. LAMALINE [Concomitant]
     Dosage: UNK

REACTIONS (7)
  - PULMONARY FUNCTION TEST DECREASED [None]
  - CARDIAC FAILURE [None]
  - ATRIAL FIBRILLATION [None]
  - PRODUCTIVE COUGH [None]
  - INTERSTITIAL LUNG DISEASE [None]
  - RENAL FAILURE [None]
  - BACTERIAL TEST POSITIVE [None]
